FAERS Safety Report 6000459-2 (Version None)
Quarter: 2008Q4

REPORT INFORMATION
  Report Type: 
  Country: None (occurrence: None)
  Receive Date: 20081215
  Receipt Date: 20080808
  Transmission Date: 20090506
  Serious: No
  Sender: FDA-Public Use
  Company Number: US-AMGEN-KDL300612

PATIENT
  Sex: Female

DRUGS (2)
  1. ENBREL [Suspect]
     Indication: RHEUMATOID ARTHRITIS
     Route: 058
     Dates: start: 20080325
  2. METHOTREXATE [Concomitant]
     Dates: start: 20080131

REACTIONS (6)
  - FACIAL PAIN [None]
  - INJECTION SITE HAEMATOMA [None]
  - MELANOCYTIC NAEVUS [None]
  - ORAL PAIN [None]
  - RASH PAPULAR [None]
  - TOOTH EXTRACTION [None]
